FAERS Safety Report 6475071-1 (Version None)
Quarter: 2009Q4

REPORT INFORMATION
  Report Type: 
  Country: None (occurrence: None)
  Receive Date: 20091204
  Receipt Date: 20090707
  Transmission Date: 20100525
  Serious: Yes (Other)
  Sender: FDA-Public Use
  Company Number: US-ELI_LILLY_AND_COMPANY-US200903007060

PATIENT
  Sex: Male

DRUGS (2)
  1. HUMALOG MIX 75/25 [Suspect]
  2. HUMALOG MIX 75/25 [Suspect]

REACTIONS (4)
  - ABNORMAL BEHAVIOUR [None]
  - FALL [None]
  - HYPERSENSITIVITY [None]
  - HYPOGLYCAEMIC UNCONSCIOUSNESS [None]
